FAERS Safety Report 4519838-5 (Version None)
Quarter: 2004Q4

REPORT INFORMATION
  Report Type: 
  Country: None (occurrence: None)
  Receive Date: 20041207
  Receipt Date: 20041123
  Transmission Date: 20050328
  Serious: Yes (Hospitalization, Disabling)
  Sender: FDA-Public Use
  Company Number: PHBS2004DK15844

PATIENT
  Age: 80 Year
  Sex: Female

DRUGS (1)
  1. TEGRETOL [Suspect]
     Dosage: 100 MG, BID
     Dates: start: 20040920, end: 20041005

REACTIONS (1)
  - IDIOPATHIC THROMBOCYTOPENIC PURPURA [None]
